FAERS Safety Report 25992711 (Version 2)
Quarter: 2025Q4

REPORT INFORMATION
  Report Type: Spontaneous
  Country: EU (occurrence: EU)
  Receive Date: 20251103
  Receipt Date: 20251106
  Transmission Date: 20260117
  Serious: Yes (Death, Other)
  Sender: SANDOZ
  Company Number: EU-002147023-NVSC2021IT053624

PATIENT
  Age: 55 Year
  Sex: Male

DRUGS (10)
  1. HUMAN IMMUNOGLOBULIN G [Suspect]
     Active Substance: HUMAN IMMUNOGLOBULIN G
     Dosage: 400 MG/KG
     Route: 065
  2. HUMAN IMMUNOGLOBULIN G [Suspect]
     Active Substance: HUMAN IMMUNOGLOBULIN G
     Indication: Immunosuppression
     Dosage: 2 G/G; 2 GRAM PER GRAM; TREATED WITH BEGELOMAB;TWO OTHER CYCLES IN THE FOLLOWING 2 MONTHS; IN THE FO
     Route: 042
  3. MYCOPHENOLATE MOFETIL [Suspect]
     Active Substance: MYCOPHENOLATE MOFETIL
     Dosage: 1 G, QD; 1 GRAM, QD; REINTRODUCED WITH LOW-DOSE PREDNISONE
     Route: 065
  4. MYCOPHENOLATE MOFETIL [Suspect]
     Active Substance: MYCOPHENOLATE MOFETIL
     Indication: Dermatomyositis
     Dosage: 3 G, QD, OVER 3 WEEKS
     Route: 065
  5. METHYLPREDNISOLONE [Suspect]
     Active Substance: METHYLPREDNISOLONE
     Indication: Dermatomyositis
     Dosage: 0.7 MG/KG, QD; 0.7 MG/KG DAILY TO BE SLOWLY TAPERED
     Route: 065
  6. PREDNISONE [Suspect]
     Active Substance: PREDNISONE
     Indication: Dermatomyositis
     Dosage: 10 MG; LOW-DOSE TOGETHER WITH MYCOPHENOLATE MOFETIL
     Route: 048
  7. RITUXIMAB [Suspect]
     Active Substance: RITUXIMAB
     Indication: Immunosuppressant drug therapy
     Dosage: UNK
     Route: 065
  8. RITUXIMAB [Suspect]
     Active Substance: RITUXIMAB
     Indication: Dermatomyositis
     Dosage: UNK; IN THE FOLLOWING 2 MONTHS, IVIG AND RTX WERE RECEIVED WHILE CONTINUING GLUCOCORTICOIDS
     Route: 065
  9. TACROLIMUS [Suspect]
     Active Substance: TACROLIMUS
     Indication: Dermatomyositis
     Dosage: 1 G (1 GR)
     Route: 065
  10. BEGELOMAB [Concomitant]
     Active Substance: BEGELOMAB
     Indication: Dermatomyositis
     Dosage: 4 MG/M2 DAILY FOR 5 CONSECUTIVE DAYS; NEW 5-DAY CYCLE AT THE DOSAGE OF 4 MG/M2 DAILY FOR 5 CONSECUTI
     Route: 042

REACTIONS (11)
  - Drug ineffective for unapproved indication [Fatal]
  - Respiratory failure [Fatal]
  - Pneumonia aspiration [Fatal]
  - Dehiscence [Unknown]
  - Ileal perforation [Unknown]
  - Acute hepatitis C [Unknown]
  - Enterococcal sepsis [Unknown]
  - Fungal peritonitis [Unknown]
  - Condition aggravated [Unknown]
  - Dermatomyositis [Unknown]
  - Off label use [Unknown]
